FAERS Safety Report 7579740-1 (Version None)
Quarter: 2011Q2

REPORT INFORMATION
  Report Type: 
  Country: None (occurrence: None)
  Receive Date: 20110525
  Receipt Date: 20110308
  Transmission Date: 20111010
  Serious: No
  Sender: FDA-Public Use
  Company Number: 324676

PATIENT
  Age: 18 Year
  Sex: Male

DRUGS (2)
  1. VICTOZA [Suspect]
     Indication: TYPE 2 DIABETES MELLITUS
     Dosage: SUBCUTANEOUS
     Route: 058
     Dates: start: 20110304
  2. VICTOZA [Suspect]
     Indication: WEIGHT CONTROL
     Dosage: SUBCUTANEOUS
     Route: 058
     Dates: start: 20110304

REACTIONS (1)
  - HEADACHE [None]
